FAERS Safety Report 9770738 (Version 2)
Quarter: 2014Q1

REPORT INFORMATION
  Report Type: Spontaneous
  Country: US (occurrence: US)
  Receive Date: 20131218
  Receipt Date: 20140103
  Transmission Date: 20141002
  Serious: No
  Sender: FDA-Public Use
  Company Number: US-009507513-1312USA005037

PATIENT
  Sex: Female

DRUGS (1)
  1. DULERA [Suspect]
     Indication: BRONCHOSPASM
     Dosage: 2 PUFFS TWICE A DAY
     Route: 055
     Dates: start: 20131120

REACTIONS (4)
  - Dyspnoea [Not Recovered/Not Resolved]
  - Wheezing [Not Recovered/Not Resolved]
  - Incorrect dose administered [Unknown]
  - Product quality issue [Unknown]
